FAERS Safety Report 9570827 (Version 8)
Quarter: 2014Q1

REPORT INFORMATION
  Report Type: Spontaneous
  Country: IL (occurrence: IL)
  Receive Date: 20131001
  Receipt Date: 20140216
  Transmission Date: 20141002
  Serious: Yes (Hospitalization, Other)
  Sender: FDA-Public Use
  Company Number: IL-009507513-1308ISR005394

PATIENT
  Age: 37 Year
  Sex: Male
  Weight: 67 kg

DRUGS (3)
  1. VICTRELIS [Suspect]
     Indication: HEPATITIS C
     Dosage: UNK, TID
     Route: 048
     Dates: start: 20130808
  2. PEGASYS [Suspect]
     Indication: HEPATITIS C
     Dosage: UNK
     Dates: start: 201307
  3. COPEGUS [Suspect]
     Indication: HEPATITIS C
     Dosage: UNK

REACTIONS (23)
  - Abscess limb [Recovering/Resolving]
  - Pain in extremity [Unknown]
  - Surgery [Unknown]
  - Wound [Recovering/Resolving]
  - Pyrexia [Unknown]
  - Pain in extremity [Not Recovered/Not Resolved]
  - Skin lesion [Not Recovered/Not Resolved]
  - Empyema drainage [Unknown]
  - White blood cell count decreased [Not Recovered/Not Resolved]
  - Underdose [Unknown]
  - White blood cell count decreased [Unknown]
  - Nervousness [Not Recovered/Not Resolved]
  - Weight decreased [Recovered/Resolved]
  - Weight decreased [Recovered/Resolved]
  - Insomnia [Unknown]
  - Insomnia [Unknown]
  - Alopecia [Not Recovered/Not Resolved]
  - Fatigue [Not Recovered/Not Resolved]
  - Haemoglobin decreased [Unknown]
  - Drug dose omission [Unknown]
  - Inappropriate schedule of drug administration [Unknown]
  - Abscess [Unknown]
  - Meniscus injury [Unknown]
